FAERS Safety Report 26058592 (Version 1)
Quarter: 2025Q4

REPORT INFORMATION
  Report Type: Spontaneous
  Country: GB (occurrence: GB)
  Receive Date: 20251118
  Receipt Date: 20251118
  Transmission Date: 20260118
  Serious: Yes (Other)
  Sender: AUROBINDO
  Company Number: GB-MHRA-MED-202511052155221590-LKQCG

PATIENT
  Age: 39 Year
  Sex: Female
  Weight: 38 kg

DRUGS (1)
  1. ALENDRONIC ACID [Suspect]
     Active Substance: ALENDRONIC ACID
     Indication: Product used for unknown indication
     Dosage: 1 DOSAGE FORM 6AM ONCE WEEKLY
     Route: 065
     Dates: start: 20240722, end: 20250101

REACTIONS (1)
  - Ear injury [Recovered/Resolved with Sequelae]

NARRATIVE: CASE EVENT DATE: 20240731
